FAERS Safety Report 20229669 (Version 1)
Quarter: 2021Q4

REPORT INFORMATION
  Report Type: Spontaneous
  Country: US (occurrence: US)
  Receive Date: 20211226
  Receipt Date: 20211226
  Transmission Date: 20220303
  Serious: No
  Sender: FDA-Public Use
  Company Number: US-SA-SAC20211224000687

PATIENT
  Age: 47 Year
  Sex: Male

DRUGS (1)
  1. DUPIXENT [Suspect]
     Active Substance: DUPILUMAB
     Indication: Dermatitis atopic
     Dosage: 300 MG, QOW
     Route: 058
     Dates: start: 202009

REACTIONS (7)
  - Eye infection [Recovered/Resolved]
  - Eye irritation [Recovered/Resolved]
  - Paranasal sinus inflammation [Unknown]
  - Rhinorrhoea [Unknown]
  - Hip arthroplasty [Unknown]
  - Dental implantation [Unknown]
  - Dental implant removal [Unknown]

NARRATIVE: CASE EVENT DATE: 20210101
